FAERS Safety Report 10594354 (Version 1)
Quarter: 2014Q4

REPORT INFORMATION
  Report Type: Spontaneous
  Country: GB (occurrence: GB)
  Receive Date: 20141119
  Receipt Date: 20141119
  Transmission Date: 20150529
  Serious: Yes (Other)
  Sender: FDA-Public Use
  Company Number: PHHY2014GB149714

PATIENT
  Sex: Male

DRUGS (5)
  1. METFORMIN [Concomitant]
     Active Substance: METFORMIN HYDROCHLORIDE
     Indication: DIABETES MELLITUS
  2. TRAVATAN [Suspect]
     Active Substance: TRAVOPROST
     Dosage: TAKEN FOR 12-14 YEARS
     Route: 047
  3. APRINOX [Suspect]
     Active Substance: BENDROFLUMETHIAZIDE
     Dosage: TAKEN FOR 12-14 YEARS
  4. TIMOLOL [Suspect]
     Active Substance: TIMOLOL
     Dosage: TAKEN FOR 12-14 YEARS
  5. DORZOLAMIDE [Suspect]
     Active Substance: DORZOLAMIDE
     Dosage: TAKEN FOR 12-14 YEARS

REACTIONS (2)
  - Dizziness [Not Recovered/Not Resolved]
  - Gait disturbance [Not Recovered/Not Resolved]
